FAERS Safety Report 6115304-4 (Version None)
Quarter: 2009Q1

REPORT INFORMATION
  Report Type: 
  Country: None (occurrence: None)
  Receive Date: 20090311
  Receipt Date: 20081002
  Transmission Date: 20090719
  Serious: Yes (Other)
  Sender: FDA-Public Use
  Company Number: US200810000519

PATIENT
  Age: 55 Year

DRUGS (2)
  1. GEMZAR [Suspect]
     Indication: PANCREATIC CARCINOMA
     Dosage: 1000 MG/M2
  2. OXALIPLATIN [Concomitant]

REACTIONS (1)
  - BLOOD BILIRUBIN INCREASED [None]
